FAERS Safety Report 5715045-9 (Version None)
Quarter: 2008Q2

REPORT INFORMATION
  Report Type: 
  Country: None (occurrence: None)
  Receive Date: 20080423
  Receipt Date: 20080414
  Transmission Date: 20081010
  Serious: Yes (Hospitalization)
  Sender: FDA-Public Use
  Company Number: FR-PFIZER INC-2008011515

PATIENT
  Sex: Male

DRUGS (11)
  1. ATORVASTATIN CALCIUM [Suspect]
     Route: 048
     Dates: start: 20070501, end: 20071005
  2. ACOMPLIA [Suspect]
     Route: 048
     Dates: start: 20070501, end: 20071005
  3. GLIMEPIRIDE [Suspect]
     Route: 048
  4. GLUCOPHAGE [Suspect]
     Route: 048
  5. CLARITHROMYCIN [Concomitant]
     Route: 048
     Dates: start: 20071005, end: 20071008
  6. PLAVIX [Concomitant]
     Route: 048
  7. ASPIRIN [Concomitant]
     Route: 048
  8. PERINDOPRIL ERBUMINE [Concomitant]
     Route: 048
  9. PANTOPRAZOLE SODIUM [Concomitant]
     Route: 048
  10. CARTROL [Concomitant]
     Route: 047
  11. LATANOPROST [Concomitant]

REACTIONS (2)
  - CYTOLYTIC HEPATITIS [None]
  - TRANSAMINASES INCREASED [None]
